FAERS Safety Report 4621809-5 (Version None)
Quarter: 2005Q1

REPORT INFORMATION
  Report Type: 
  Country: None (occurrence: None)
  Receive Date: 20050329
  Receipt Date: 20050323
  Transmission Date: 20050727
  Serious: Yes (Hospitalization)
  Sender: FDA-Public Use
  Company Number: CH-ROCHE-399427

PATIENT
  Age: 45 Year
  Sex: Female

DRUGS (2)
  1. MYCOPHENOLATE MOFETIL [Suspect]
     Route: 050
     Dates: start: 20041111, end: 20041120
  2. MYCOPHENOLATE MOFETIL [Suspect]
     Route: 050
     Dates: start: 20041126

REACTIONS (5)
  - COLONIC POLYP [None]
  - DIARRHOEA [None]
  - DIVERTICULITIS [None]
  - HYPOGAMMAGLOBULINAEMIA [None]
  - OESOPHAGITIS [None]
